FAERS Safety Report 5400839-X (Version None)
Quarter: 2007Q3

REPORT INFORMATION
  Report Type: 
  Country: None (occurrence: None)
  Receive Date: 20070730
  Receipt Date: 20070406
  Transmission Date: 20080115
  Serious: No
  Sender: FDA-Public Use
  Company Number: A0646190A

PATIENT
  Age: 43 Year
  Sex: Female

DRUGS (5)
  1. IMITREX [Suspect]
     Indication: DRUG USE FOR UNKNOWN INDICATION
     Dosage: 12.5MG TWICE PER DAY
     Route: 048
     Dates: start: 20070401
  2. CYMBALTA [Concomitant]
  3. REMERON [Concomitant]
  4. REGLAN [Concomitant]
  5. PHENERGAN HCL [Concomitant]

REACTIONS (2)
  - DEPRESSION [None]
  - DRUG ADMINISTRATION ERROR [None]
